FAERS Safety Report 21540085 (Version 1)
Quarter: 2022Q4

REPORT INFORMATION
  Report Type: Spontaneous
  Country: CN (occurrence: None)
  Receive Date: 20221102
  Receipt Date: 20221102
  Transmission Date: 20230113
  Serious: Yes (Hospitalization)
  Sender: FDA-Public Use
  Company Number: CN-ROCHE-3210067

PATIENT
  Age: 44 Year
  Sex: Female
  Weight: 53.5 kg

DRUGS (6)
  1. DOCETAXEL [Suspect]
     Active Substance: DOCETAXEL
     Indication: Breast cancer
     Dosage: 115 MG
     Route: 041
     Dates: start: 20221018, end: 20221018
  2. PERJETA [Suspect]
     Active Substance: PERTUZUMAB
     Indication: Breast cancer
     Dosage: 420 MG AFTER THE FIRST DOSE OF 840 MG
     Route: 041
     Dates: start: 20221018, end: 20221018
  3. CARBOPLATIN [Suspect]
     Active Substance: CARBOPLATIN
     Indication: Breast cancer
     Dosage: 6 AUC
     Route: 041
     Dates: start: 20221018, end: 20221018
  4. HERCEPTIN [Suspect]
     Active Substance: TRASTUZUMAB
     Indication: Breast cancer
     Dosage: 6 MG/KG AFTER THE FIRST DOSE OF 8 MG/KG
     Route: 041
     Dates: start: 20221018, end: 20221018
  5. SODIUM CHLORIDE [Concomitant]
     Active Substance: SODIUM CHLORIDE
     Route: 041
     Dates: start: 20221018, end: 20221018
  6. DEXTROSE [Concomitant]
     Active Substance: DEXTROSE
     Route: 041
     Dates: start: 20221018, end: 20221018

REACTIONS (1)
  - Myelosuppression [Recovering/Resolving]

NARRATIVE: CASE EVENT DATE: 20221024
